FAERS Safety Report 15890053 (Version 1)
Quarter: 2019Q1

REPORT INFORMATION
  Report Type: Report from Study
  Country: None (occurrence: US)
  Receive Date: 20190130
  Receipt Date: 20190130
  Transmission Date: 20190417
  Serious: Yes (Other)
  Sender: FDA-Public Use
  Company Number: US-ABBVIE-19K-163-2636604-00

PATIENT
  Age: 56 Year
  Sex: Male

DRUGS (1)
  1. HUMIRA [Suspect]
     Active Substance: ADALIMUMAB
     Indication: RHEUMATOID ARTHRITIS
     Route: 058
     Dates: start: 20181218

REACTIONS (15)
  - Myocardial infarction [Unknown]
  - Malaise [Unknown]
  - Loss of personal independence in daily activities [Not Recovered/Not Resolved]
  - Lung transplant [Unknown]
  - Cardiac failure [Unknown]
  - Spinal fracture [Unknown]
  - Fatigue [Unknown]
  - Arthralgia [Not Recovered/Not Resolved]
  - Vomiting [Recovering/Resolving]
  - Renal failure [Unknown]
  - Diarrhoea [Recovering/Resolving]
  - Chills [Recovering/Resolving]
  - Hepatic failure [Unknown]
  - Food poisoning [Unknown]
  - Knee arthroplasty [Unknown]

NARRATIVE: CASE EVENT DATE: 201901
